FAERS Safety Report 8069577-1 (Version None)
Quarter: 2012Q1

REPORT INFORMATION
  Report Type: 
  Country: None (occurrence: None)
  Receive Date: 20120125
  Receipt Date: 20120118
  Transmission Date: 20120608
  Serious: Yes (Other)
  Sender: FDA-Public Use
  Company Number: FR-JNJFOC-20120109349

PATIENT
  Age: 25 Year
  Sex: Female
  Weight: 47 kg

DRUGS (3)
  1. TOPIRAMATE [Suspect]
     Indication: MIGRAINE
     Route: 048
  2. TOPIRAMATE [Suspect]
     Route: 048
     Dates: start: 20120101
  3. PROGESTOGEN [Concomitant]
     Indication: CONTRACEPTION
     Route: 065

REACTIONS (3)
  - DECREASED APPETITE [None]
  - FATIGUE [None]
  - AFFECTIVE DISORDER [None]
